FAERS Safety Report 15253022 (Version 2)
Quarter: 2018Q4

REPORT INFORMATION
  Report Type: Spontaneous
  Country: US (occurrence: US)
  Receive Date: 20180807
  Receipt Date: 20181102
  Transmission Date: 20190204
  Serious: No
  Sender: FDA-Public Use
  Company Number: US-RADIUS HEALTH INC.-2018US001516

PATIENT
  Sex: Female

DRUGS (1)
  1. TYMLOS [Suspect]
     Active Substance: ABALOPARATIDE
     Indication: OSTEOPOROSIS POSTMENOPAUSAL
     Dosage: 80 MCG, DAILY
     Route: 058
     Dates: start: 20180619, end: 20180705

REACTIONS (13)
  - Headache [Unknown]
  - Dizziness [Unknown]
  - Blood glucose abnormal [Unknown]
  - Arthralgia [Unknown]
  - Pain in jaw [Unknown]
  - Balance disorder [Unknown]
  - Peripheral swelling [Unknown]
  - Oral disorder [Unknown]
  - Asthenia [Unknown]
  - Cardiac discomfort [Unknown]
  - Ear pain [Unknown]
  - Back pain [Unknown]
  - Palpitations [Unknown]
